FAERS Safety Report 10005128 (Version 1)
Quarter: 2014Q1

REPORT INFORMATION
  Report Type: Spontaneous
  Country: US (occurrence: US)
  Receive Date: 20140312
  Receipt Date: 20140312
  Transmission Date: 20141002
  Serious: No
  Sender: FDA-Public Use
  Company Number: US-GILEAD-2013-0067541

PATIENT
  Sex: Female

DRUGS (3)
  1. LETAIRIS [Suspect]
     Indication: COR PULMONALE CHRONIC
     Dosage: 5 MG, QD
     Route: 048
     Dates: start: 20120927
  2. REVATIO [Concomitant]
  3. TYVASO [Concomitant]

REACTIONS (4)
  - Chest discomfort [Unknown]
  - Back pain [Unknown]
  - Cough [Unknown]
  - Throat irritation [Unknown]
